FAERS Safety Report 21971850 (Version 3)
Quarter: 2023Q1

REPORT INFORMATION
  Report Type: Spontaneous
  Country: DE (occurrence: DE)
  Receive Date: 20230209
  Receipt Date: 20230313
  Transmission Date: 20230418
  Serious: Yes (Other)
  Sender: FDA-Public Use
  Company Number: DE-ROCHE-3262474

PATIENT
  Sex: Female

DRUGS (32)
  1. LENALIDOMIDE [Suspect]
     Active Substance: LENALIDOMIDE
     Indication: Diffuse large B-cell lymphoma
     Dosage: (4TH LINE WITH OBINUTUZUMAB,IBRUTINIB,PREDNIS)
     Route: 065
     Dates: start: 20220927, end: 20221117
  2. LENALIDOMIDE [Suspect]
     Active Substance: LENALIDOMIDE
     Indication: Lymphoma
  3. BENDAMUSTINE HYDROCHLORIDE [Suspect]
     Active Substance: BENDAMUSTINE HYDROCHLORIDE
     Indication: Diffuse large B-cell lymphoma
     Dosage: (CYCLIC,3RD LINE WITH POLATUZUMAB,RITUXIMAB 3)
     Route: 042
     Dates: start: 20220613, end: 20220920
  4. BENDAMUSTINE HYDROCHLORIDE [Suspect]
     Active Substance: BENDAMUSTINE HYDROCHLORIDE
     Indication: Lymphoma
  5. IMBRUVICA [Suspect]
     Active Substance: IBRUTINIB
     Indication: Diffuse large B-cell lymphoma
     Dosage: (4TH LINE WITH OBINUTUZUMAB,IBRUTINIB,PREDNIS)
     Route: 065
     Dates: start: 20220927, end: 20221117
  6. IMBRUVICA [Suspect]
     Active Substance: IBRUTINIB
     Indication: Lymphoma
  7. OBINUTUZUMAB [Suspect]
     Active Substance: OBINUTUZUMAB
     Indication: Diffuse large B-cell lymphoma
     Dosage: (4TH LINE WITH VENETOCLAX, IBRUTINIB, PREDNISO)
     Route: 042
     Dates: start: 20220927, end: 20221117
  8. OBINUTUZUMAB [Suspect]
     Active Substance: OBINUTUZUMAB
     Indication: Lymphoma
  9. CYCLOPHOSPHAMIDE\DOXORUBICIN\PREDNISONE\VINCRISTINE [Suspect]
     Active Substance: CYCLOPHOSPHAMIDE\DOXORUBICIN\PREDNISONE\VINCRISTINE
     Indication: Diffuse large B-cell lymphoma
     Dosage: UNK(FIRST LINE WITH RITUXIMAB)
     Route: 065
     Dates: start: 20210701, end: 20211101
  10. VENETOCLAX [Suspect]
     Active Substance: VENETOCLAX
     Indication: Diffuse large B-cell lymphoma
     Dosage: UNK(4TH LINE WITH OBINUTUZUMAB,IBRUTINIB,PREDNISO)
     Route: 048
     Dates: start: 20220927, end: 20221117
  11. VENETOCLAX [Suspect]
     Active Substance: VENETOCLAX
     Indication: Lymphoma
  12. CISPLATIN\CYTARABINE\DEXAMETHASONE [Suspect]
     Active Substance: CISPLATIN\CYTARABINE\DEXAMETHASONE
     Indication: Diffuse large B-cell lymphoma
     Dosage: (SECOND LINE WITH RITUXIMAB, TWICE)
     Route: 065
     Dates: start: 20220330, end: 20220525
  13. PREDNISOLONE [Suspect]
     Active Substance: PREDNISOLONE
     Indication: Diffuse large B-cell lymphoma
     Dosage: FOURTH LINE WITH OBINUTUZUMAB,IBRUTINIB,VENETCLAX
     Route: 065
     Dates: start: 20220927, end: 20221117
  14. PREDNISOLONE [Suspect]
     Active Substance: PREDNISOLONE
     Indication: Lymphoma
  15. TRUXIMA [Suspect]
     Active Substance: RITUXIMAB-ABBS
     Indication: Diffuse large B-cell lymphoma
     Dosage: UNK (FIRST LINE WITH CHOP)
     Route: 065
     Dates: start: 20210701, end: 20211101
  16. TRUXIMA [Suspect]
     Active Substance: RITUXIMAB-ABBS
     Indication: Lymphoma
     Dosage: UNK(SECOND LINE WITH DHAP, TWICE)
     Route: 065
     Dates: start: 20220330, end: 20220525
  17. TRUXIMA [Suspect]
     Active Substance: RITUXIMAB-ABBS
     Dosage: (3RD LINE WITH POLATUZUMAB, BENDAMUSTINE 3TIME)
     Route: 065
     Dates: start: 20220613, end: 20220920
  18. POLIVY [Suspect]
     Active Substance: POLATUZUMAB VEDOTIN-PIIQ
     Indication: Diffuse large B-cell lymphoma
     Dosage: (3RD LINE WITH RITUXIMAB AND BENDAMUSTINE, 3TI)
     Route: 065
     Dates: start: 20220613, end: 20220920
  19. POLIVY [Suspect]
     Active Substance: POLATUZUMAB VEDOTIN-PIIQ
     Indication: Lymphoma
  20. VINCRISTINE SULFATE [Suspect]
     Active Substance: VINCRISTINE SULFATE
     Indication: Product used for unknown indication
     Dosage: (FIRST LINE WITH RITUXIMAB, AS A PART)
     Route: 065
     Dates: start: 20210701, end: 20211101
  21. VINCRISTINE SULFATE [Suspect]
     Active Substance: VINCRISTINE SULFATE
     Indication: Lymphoma
  22. DOXORUBICIN [Suspect]
     Active Substance: DOXORUBICIN
     Indication: Diffuse large B-cell lymphoma
     Dosage: (FIRST LINE WITH RITUXIMAB, AS A PART OF CHOP)
     Route: 065
     Dates: start: 20210701, end: 20211101
  23. DOXORUBICIN [Suspect]
     Active Substance: DOXORUBICIN
     Indication: Lymphoma
  24. CYCLOPHOSPHAMIDE [Suspect]
     Active Substance: CYCLOPHOSPHAMIDE
     Indication: Diffuse large B-cell lymphoma
     Dosage: (1ST LINE WITH RITUXIMAB, AS A PART OF CHOP)
     Route: 065
     Dates: start: 20210701, end: 20211101
  25. CYCLOPHOSPHAMIDE [Suspect]
     Active Substance: CYCLOPHOSPHAMIDE
     Indication: Lymphoma
  26. PREDNISONE [Suspect]
     Active Substance: PREDNISONE
     Indication: Diffuse large B-cell lymphoma
     Dosage: (FIRST LINE WITH RITUXIMAB, AS A PART OF CHOP)
     Route: 065
     Dates: start: 20210701, end: 20211101
  27. CYTARABINE [Suspect]
     Active Substance: CYTARABINE
     Indication: Diffuse large B-cell lymphoma
     Dosage: (2ND LINE WITH RITUXIMAB, TWICE, AS A PART OF)
     Route: 065
     Dates: start: 20220330, end: 20220525
  28. CYTARABINE [Suspect]
     Active Substance: CYTARABINE
     Indication: Lymphoma
  29. DEXAMETHASONE [Suspect]
     Active Substance: DEXAMETHASONE
     Indication: Diffuse large B-cell lymphoma
     Dosage: (2ND LINE WITH RITUXIMAB, TWICE, AS A PART OF)
     Route: 065
     Dates: start: 20220330, end: 20220525
  30. DEXAMETHASONE [Suspect]
     Active Substance: DEXAMETHASONE
     Indication: Lymphoma
  31. CISPLATIN [Suspect]
     Active Substance: CISPLATIN
     Indication: Diffuse large B-cell lymphoma
     Dosage: (SECOND LINE WITH RITUXIMAB, TWICE, AS A PART)
     Route: 065
     Dates: start: 20220330, end: 20220525
  32. CISPLATIN [Suspect]
     Active Substance: CISPLATIN
     Indication: Lymphoma

REACTIONS (3)
  - Lymphoma [Unknown]
  - Malignant neoplasm progression [Unknown]
  - Off label use [Unknown]

NARRATIVE: CASE EVENT DATE: 20220613
